FAERS Safety Report 10289776 (Version 1)
Quarter: 2014Q3

REPORT INFORMATION
  Report Type: Spontaneous
  Country: US (occurrence: US)
  Receive Date: 20140710
  Receipt Date: 20140710
  Transmission Date: 20150326
  Serious: Yes (Hospitalization)
  Sender: FDA-Public Use
  Company Number: US-ELI_LILLY_AND_COMPANY-US201406010154

PATIENT
  Sex: Female

DRUGS (20)
  1. FENTANYL. [Concomitant]
     Active Substance: FENTANYL
  2. PROAIR HFA [Concomitant]
     Active Substance: ALBUTEROL SULFATE
     Dosage: UNK, BID
  3. FLUTICASONE [Concomitant]
     Active Substance: FLUTICASONE\FLUTICASONE PROPIONATE
     Dosage: 50 MG, UNK
  4. COENZYME Q10 [Concomitant]
     Active Substance: UBIDECARENONE
     Dosage: 100 MG, UNK
  5. ADVAIR HFA [Concomitant]
     Active Substance: FLUTICASONE PROPIONATE\SALMETEROL XINAFOATE
     Dosage: UNK, BID
  6. BETAMETHASONE W/CLOTRIMAZOLE [Concomitant]
  7. NYSTATIN. [Concomitant]
     Active Substance: NYSTATIN
  8. HUMALOG MIX50/50 [Suspect]
     Active Substance: INSULIN LISPRO
     Indication: DIABETES MELLITUS
     Dosage: 100 U, TID
     Route: 065
     Dates: start: 201309, end: 201401
  9. PROTONIX [Concomitant]
     Active Substance: PANTOPRAZOLE SODIUM
  10. TRAMADOL HCL [Concomitant]
     Active Substance: TRAMADOL HYDROCHLORIDE
     Dosage: 50 MG, UNK
  11. ASPIRIN. [Concomitant]
     Active Substance: ASPIRIN
     Dosage: 81 MG, UNK
  12. ALIGN [Concomitant]
     Active Substance: BIFIDOBACTERIUM LONGUM SUBSP. INFANTIS
  13. ANASTROZOLE. [Concomitant]
     Active Substance: ANASTROZOLE
     Route: 065
  14. LOSARTAN [Concomitant]
     Active Substance: LOSARTAN
  15. SYNTHROID [Concomitant]
     Active Substance: LEVOTHYROXINE SODIUM
  16. VITAMIN D [Concomitant]
     Active Substance: CHOLECALCIFEROL
  17. MISOPROSTOL. [Concomitant]
     Active Substance: MISOPROSTOL
     Dosage: 100 UG, UNK
  18. TRIAMCINOLONE ACETONIDE. [Concomitant]
     Active Substance: TRIAMCINOLONE ACETONIDE
  19. ALPRAZOLAM. [Concomitant]
     Active Substance: ALPRAZOLAM
  20. METFORMIN [Concomitant]
     Active Substance: METFORMIN HYDROCHLORIDE
     Dosage: UNK, TID

REACTIONS (4)
  - Blood glucose increased [Recovered/Resolved]
  - Pneumonia [Unknown]
  - Pleurisy [Unknown]
  - Drug ineffective [Recovered/Resolved]
